FAERS Safety Report 4425572-2 (Version None)
Quarter: 2004Q3

REPORT INFORMATION
  Report Type: 
  Country: None (occurrence: None)
  Receive Date: 20040810
  Receipt Date: 20040727
  Transmission Date: 20050211
  Serious: Yes (Death, Hospitalization)
  Sender: FDA-Public Use
  Company Number: MEDI-0002097

PATIENT
  Age: 78 Year
  Sex: Male
  Weight: 93.441 kg

DRUGS (3)
  1. ETHYOL [Suspect]
     Indication: RADIOTHERAPY
     Dosage: 500 MG, 5 IN 1 WK, SUBCUTANEOUS
     Route: 058
     Dates: start: 20040621, end: 20040702
  2. RADIATION THERAPY [Concomitant]
  3. LORTAB ELIXIR (PARACETAMOL, HYDROCODONE BITARTRATE) [Concomitant]

REACTIONS (2)
  - CHRONIC OBSTRUCTIVE AIRWAYS DISEASE EXACERBATED [None]
  - STEVENS-JOHNSON SYNDROME [None]
